FAERS Safety Report 10771447 (Version 1)
Quarter: 2015Q1

REPORT INFORMATION
  Report Type: Spontaneous
  Country: JP (occurrence: JP)
  Receive Date: 20150206
  Receipt Date: 20150206
  Transmission Date: 20150721
  Serious: Yes (Disabling, Other)
  Sender: FDA-Public Use
  Company Number: JP-GLAXOSMITHKLINE-JP2014JPN013232

PATIENT
  Age: 61 Year
  Sex: Male

DRUGS (3)
  1. ARRANON [Suspect]
     Active Substance: NELARABINE
     Dosage: 2550 MG, QD
     Route: 041
     Dates: start: 20140509, end: 20140509
  2. ARRANON [Suspect]
     Active Substance: NELARABINE
     Dosage: 2550 MG, QD
     Route: 041
     Dates: start: 20140511, end: 20140511
  3. ARRANON [Suspect]
     Active Substance: NELARABINE
     Indication: ACUTE LYMPHOCYTIC LEUKAEMIA
     Dosage: 2550 MG, QD
     Route: 041
     Dates: start: 20140507, end: 20140507

REACTIONS (7)
  - Peripheral sensory neuropathy [Unknown]
  - Neuropathy peripheral [Unknown]
  - Neurotoxicity [Recovered/Resolved with Sequelae]
  - Pain [Unknown]
  - Polyneuropathy [Recovered/Resolved with Sequelae]
  - Hypoaesthesia [Unknown]
  - Abasia [Unknown]

NARRATIVE: CASE EVENT DATE: 201405
